FAERS Safety Report 25743604 (Version 3)
Quarter: 2025Q4

REPORT INFORMATION
  Report Type: Spontaneous
  Country: US (occurrence: US)
  Receive Date: 20250831
  Receipt Date: 20251127
  Transmission Date: 20260118
  Serious: Yes (Other)
  Sender: MDD OPERATIONS
  Company Number: US-MDD US Operations-MDD202507-002781

PATIENT
  Age: 83 Year
  Sex: Male
  Weight: 54.43 kg

DRUGS (13)
  1. ONAPGO [Suspect]
     Active Substance: APOMORPHINE HYDROCHLORIDE
     Indication: Parkinson^s disease
  2. ONAPGO [Suspect]
     Active Substance: APOMORPHINE HYDROCHLORIDE
     Indication: On and off phenomenon
     Dates: start: 20250723
  3. ONAPGO [Suspect]
     Active Substance: APOMORPHINE HYDROCHLORIDE
     Dates: start: 202507
  4. ONAPGO [Suspect]
     Active Substance: APOMORPHINE HYDROCHLORIDE
     Dosage: STRENGTH: 98MG/20ML?INFUSE CONTENTS OF 1 CARTRIDGE UNDER THE SKIN FOR 16 HOURS OR LESS EACH DAY. CON
     Route: 058
     Dates: start: 202507
  5. ONAPGO [Suspect]
     Active Substance: APOMORPHINE HYDROCHLORIDE
     Dosage: STRENGTH: 98MG/20ML (4.9MG/ML)?DOSE: 98 MG EACH DAY
     Dates: start: 202507
  6. ONAPGO [Suspect]
     Active Substance: APOMORPHINE HYDROCHLORIDE
     Dosage: 3MG, 16 HOURS OR LESS EACH DAY
     Dates: start: 202510, end: 20251113
  7. ONAPGO [Suspect]
     Active Substance: APOMORPHINE HYDROCHLORIDE
     Dosage: 2.5MG, 16 HOURS OR LESS EACH DAY
  8. AMANTADINE [Concomitant]
     Active Substance: AMANTADINE
     Dosage: (BREAKFAST AND DINNER)
  9. RYTARY [Concomitant]
     Active Substance: CARBIDOPA\LEVODOPA
     Dosage: A DAY (BREAKFAST, LUNCH, DINNER)
  10. RYTARY [Concomitant]
     Active Substance: CARBIDOPA\LEVODOPA
     Dosage: DECREASED THE DOSE
  11. FLOMAX [Concomitant]
     Active Substance: TAMSULOSIN HYDROCHLORIDE
     Dosage: AFTER HALF AN HOUR OF DINNER
  12. MOTRIN [Concomitant]
     Active Substance: IBUPROFEN
     Indication: Pain
  13. BACLOFEN [Concomitant]
     Active Substance: BACLOFEN
     Indication: Muscle relaxant therapy

REACTIONS (8)
  - Choking [Recovered/Resolved]
  - Hypersomnia [Unknown]
  - Productive cough [Recovered/Resolved]
  - Drooling [Recovered/Resolved]
  - Fatigue [Unknown]
  - Somnolence [Recovered/Resolved]
  - Dyskinesia [Recovered/Resolved]
  - Therapeutic product effect incomplete [Unknown]

NARRATIVE: CASE EVENT DATE: 20250701
